FAERS Safety Report 8308797-5 (Version None)
Quarter: 2012Q2

REPORT INFORMATION
  Report Type: 
  Country: None (occurrence: None)
  Receive Date: 20120421
  Receipt Date: 20120421
  Transmission Date: 20120825
  Serious: Yes (Hospitalization)
  Sender: FDA-Public Use
  Company Number: None

PATIENT
  Age: 83 Year
  Sex: Male
  Weight: 44.9 kg

DRUGS (1)
  1. CIPROFLOXACIN [Suspect]
     Indication: URINARY TRACT INFECTION
     Dosage: 250 MG BID PO
     Route: 048
     Dates: start: 20120301, end: 20120316

REACTIONS (3)
  - FAILURE TO THRIVE [None]
  - CLOSTRIDIUM DIFFICILE COLITIS [None]
  - FATIGUE [None]
